FAERS Safety Report 14525063 (Version 1)
Quarter: 2018Q1

REPORT INFORMATION
  Report Type: Spontaneous
  Country: FR (occurrence: FR)
  Receive Date: 20180213
  Receipt Date: 20180213
  Transmission Date: 20180509
  Serious: Yes (Hospitalization)
  Sender: FDA-Public Use
  Company Number: PHHY2018FR019158

PATIENT
  Age: 52 Year
  Sex: Male
  Weight: 61.5 kg

DRUGS (2)
  1. SIRTURO [Suspect]
     Active Substance: BEDAQUILINE FUMARATE
     Indication: MYCOBACTERIAL INFECTION
     Dosage: 400 MG, QD
     Route: 048
     Dates: start: 20171106, end: 20171130
  2. LAMPREN [Suspect]
     Active Substance: CLOFAZIMINE
     Indication: MYCOBACTERIAL INFECTION
     Dosage: 1 DF, QD
     Route: 048
     Dates: start: 20171106

REACTIONS (2)
  - Dizziness [Recovered/Resolved]
  - Electrocardiogram QT prolonged [Recovered/Resolved]

NARRATIVE: CASE EVENT DATE: 20171114
